FAERS Safety Report 20365342 (Version 1)
Quarter: 2022Q1

REPORT INFORMATION
  Report Type: Report from Study
  Country: US (occurrence: US)
  Receive Date: 20220122
  Receipt Date: 20220122
  Transmission Date: 20220423
  Serious: Yes (Disabling, Other)
  Sender: FDA-Public Use
  Company Number: US-NOVARTISPH-NVSC2022US009069

PATIENT
  Age: 41 Year
  Sex: Female
  Weight: 85.28 kg

DRUGS (1)
  1. ENTRESTO [Suspect]
     Active Substance: SACUBITRIL\VALSARTAN
     Indication: Cardiac disorder
     Dosage: 0.5 DOSAGE FORM, BID (1/2 TABLET IN THE MORNING AND 1/2 TABLET IN THE AFTERNOON)
     Route: 048
     Dates: start: 20211217

REACTIONS (3)
  - Cough [Recovering/Resolving]
  - Wrong technique in product usage process [Not Recovered/Not Resolved]
  - Product use in unapproved indication [Unknown]

NARRATIVE: CASE EVENT DATE: 20211217
